FAERS Safety Report 9394570 (Version 5)
Quarter: 2014Q2

REPORT INFORMATION
  Report Type: Spontaneous
  Country: CN (occurrence: CN)
  Receive Date: 20130711
  Receipt Date: 20140512
  Transmission Date: 20141212
  Serious: Yes (Life-Threatening, Hospitalization)
  Sender: FDA-Public Use
  Company Number: PHHY2013CN073265

PATIENT
  Age: 51 Year
  Sex: Male

DRUGS (9)
  1. LESCOL [Suspect]
     Indication: HYPERLIPIDAEMIA
     Dosage: 80 MG, QD (EVERY NIGHT)
     Route: 048
     Dates: start: 20130625, end: 20130626
  2. ASPIRIN [Concomitant]
     Dosage: 100 MG, QD (PER NIGHT)
     Route: 048
  3. CLOPIDOGREL SULFATE [Concomitant]
     Dosage: 75 MG, QD
     Route: 048
  4. ISOSORBIDE MONONITRATE [Concomitant]
     Dosage: 20 MG, BID
     Route: 048
  5. ISOSORBIDE DINITRATE [Concomitant]
     Dosage: 5 MG, UNK
     Route: 060
  6. PANTOPRAZOLE SODIUM [Concomitant]
     Dosage: 20 MG, QD (PER NIGHT)
     Route: 048
  7. ALUMINIUM PHOSPHATE GEL [Concomitant]
     Dosage: UNK UKN, UNK
     Route: 048
  8. COENZYME COMPLEX [Concomitant]
     Dosage: 2 DF, QD
     Route: 042
  9. SODIUM FERULATE [Concomitant]
     Dosage: 0.3 G, QD
     Route: 042

REACTIONS (19)
  - Liver injury [Recovered/Resolved]
  - Acute abdomen [Recovered/Resolved]
  - Abdominal pain upper [Recovered/Resolved]
  - Abdominal tenderness [Recovered/Resolved]
  - Abdominal distension [Recovered/Resolved]
  - Discomfort [Recovered/Resolved]
  - Vomiting [Recovered/Resolved]
  - Nausea [Recovered/Resolved]
  - Transaminases increased [Recovered/Resolved]
  - Alanine aminotransferase increased [Recovered/Resolved]
  - Glutathione s-transferase increased [Recovered/Resolved]
  - Aspartate aminotransferase increased [Recovered/Resolved]
  - Gamma-glutamyltransferase increased [Recovered/Resolved]
  - Chills [Recovered/Resolved]
  - Pyrexia [Recovered/Resolved]
  - Pain [Recovered/Resolved]
  - Hepatocellular injury [Recovering/Resolving]
  - Hepatic cyst [Recovered/Resolved]
  - Palpitations [Recovered/Resolved]
